FAERS Safety Report 19608909 (Version 1)
Quarter: 2021Q3

REPORT INFORMATION
  Report Type: Spontaneous
  Country: US (occurrence: US)
  Receive Date: 20210725
  Receipt Date: 20210725
  Transmission Date: 20211014
  Serious: Yes (Life-Threatening, Hospitalization)
  Sender: FDA-Public Use
  Company Number: None

PATIENT
  Age: 27 Year
  Sex: Female
  Weight: 50.31 kg

DRUGS (8)
  1. EMGALITY [Suspect]
     Active Substance: GALCANEZUMAB-GNLM
     Route: 058
     Dates: start: 20210724, end: 20210724
  2. BENADRYL [Concomitant]
     Active Substance: DIPHENHYDRAMINE HYDROCHLORIDE
  3. LEXAPRO [Concomitant]
     Active Substance: ESCITALOPRAM OXALATE
  4. TRAZODONE [Concomitant]
     Active Substance: TRAZODONE HYDROCHLORIDE
  5. KLONOPIN [Concomitant]
     Active Substance: CLONAZEPAM
  6. UBRELVY [Concomitant]
     Active Substance: UBROGEPANT
  7. DILANTIN [Concomitant]
     Active Substance: PHENYTOIN
  8. ASPIIRIN [Concomitant]

REACTIONS (6)
  - Injection site pruritus [None]
  - Anaphylactic reaction [None]
  - Injection site pain [None]
  - Urticaria [None]
  - Pharyngeal swelling [None]
  - Chest discomfort [None]

NARRATIVE: CASE EVENT DATE: 20210724
